FAERS Safety Report 17218705 (Version 1)
Quarter: 2019Q4

REPORT INFORMATION
  Report Type: Spontaneous
  Country: SE (occurrence: SE)
  Receive Date: 20191231
  Receipt Date: 20191231
  Transmission Date: 20200122
  Serious: Yes (Hospitalization)
  Sender: FDA-Public Use
  Company Number: SE-MYLANLABS-2019M1131555

PATIENT
  Age: 49 Year
  Sex: Female

DRUGS (1)
  1. LERGIGAN (PROMETHAZINE) [Suspect]
     Active Substance: PROMETHAZINE HYDROCHLORIDE
     Indication: PRODUCT USED FOR UNKNOWN INDICATION
     Dosage: POTENTIELLT 200 ST, UPPEMOT 5 G
     Route: 048
     Dates: start: 20180321, end: 20180321

REACTIONS (16)
  - Intentional self-injury [Unknown]
  - Dysstasia [Unknown]
  - Depressed level of consciousness [Unknown]
  - Musculoskeletal stiffness [Unknown]
  - Hallucination [Unknown]
  - Fatigue [Unknown]
  - Intentional overdose [Unknown]
  - Confusional state [Unknown]
  - Anxiety [Unknown]
  - Somnolence [Unknown]
  - Agitation [Unknown]
  - Urinary retention [Unknown]
  - Gait disturbance [Unknown]
  - Lethargy [Unknown]
  - Akathisia [Unknown]
  - Dry mouth [Unknown]

NARRATIVE: CASE EVENT DATE: 201803
